FAERS Safety Report 9979420 (Version 1)
Quarter: 2014Q1

REPORT INFORMATION
  Report Type: Report from Study
  Country: US (occurrence: US)
  Receive Date: 20140306
  Receipt Date: 20140306
  Transmission Date: 20141002
  Serious: No
  Sender: FDA-Public Use
  Company Number: US-ABBVIE-13P-163-1169659-00

PATIENT
  Age: 50 Year
  Sex: Female
  Weight: 68.1 kg

DRUGS (17)
  1. HUMIRA [Suspect]
     Indication: COLITIS ULCERATIVE
     Route: 058
     Dates: start: 201304, end: 201304
  2. HUMIRA [Suspect]
     Route: 058
     Dates: start: 201305, end: 201305
  3. HUMIRA [Suspect]
     Route: 058
     Dates: start: 201305
  4. WARFARIN [Suspect]
     Indication: THROMBOSIS
     Dates: start: 201305, end: 201310
  5. PERCOCET [Concomitant]
     Indication: PAIN
  6. TOPIRAMATE [Concomitant]
     Indication: MIGRAINE
  7. GABAPENTIN [Concomitant]
     Indication: NEUROPATHY PERIPHERAL
  8. MIGRANAL [Concomitant]
     Indication: MIGRAINE
  9. TIZANIDINE [Concomitant]
     Indication: MUSCLE SPASMS
  10. TIZANIDINE [Concomitant]
     Indication: MUSCLE SPASMS
  11. ALPRAZOLAM [Concomitant]
     Indication: ANXIETY
  12. TEMAZEPAM [Concomitant]
     Indication: INSOMNIA
  13. TEMAZEPAM [Concomitant]
     Indication: DEPRESSION
  14. AMITRIPTYLINE [Concomitant]
     Indication: INSOMNIA
  15. ESCITALOPRAM [Concomitant]
     Indication: DEPRESSION
  16. OMEPRAZOLE [Concomitant]
     Indication: GASTROOESOPHAGEAL REFLUX DISEASE
  17. MELOXICAM [Concomitant]
     Indication: PAIN

REACTIONS (11)
  - Rhinorrhoea [Not Recovered/Not Resolved]
  - Malaise [Recovering/Resolving]
  - Upper respiratory tract infection [Recovered/Resolved]
  - Cough [Recovering/Resolving]
  - Haemoptysis [Recovered/Resolved]
  - Fatigue [Not Recovered/Not Resolved]
  - Fall [Recovered/Resolved]
  - Limb injury [Recovered/Resolved]
  - Contusion [Recovering/Resolving]
  - Contusion [Recovering/Resolving]
  - Ligament sprain [Recovered/Resolved]
